FAERS Safety Report 13072292 (Version 1)
Quarter: 2016Q4

REPORT INFORMATION
  Report Type: Spontaneous
  Country: ES (occurrence: ES)
  Receive Date: 20161229
  Receipt Date: 20161229
  Transmission Date: 20170207
  Serious: Yes (Other)
  Sender: FDA-Public Use
  Company Number: ES-BAYER-2016-241261

PATIENT
  Age: 38 Year
  Sex: Male
  Weight: 83 kg

DRUGS (3)
  1. ADIRO 100 MG [Suspect]
     Active Substance: ASPIRIN
     Indication: PERICARDITIS
     Dosage: 100 MG, QD
     Route: 048
     Dates: start: 201606
  2. SIMVASTATIN. [Suspect]
     Active Substance: SIMVASTATIN
     Indication: PERICARDITIS
     Dosage: 20 MG, QD
     Route: 048
     Dates: start: 201606
  3. FENOFIBRATE. [Suspect]
     Active Substance: FENOFIBRATE
     Indication: PERICARDITIS
     Dosage: 145 MG, QD
     Route: 048
     Dates: start: 201606

REACTIONS (3)
  - Hyperbilirubinaemia [Unknown]
  - Myalgia [Unknown]
  - Chest pain [Unknown]

NARRATIVE: CASE EVENT DATE: 20161020
